FAERS Safety Report 25709413 (Version 1)
Quarter: 2025Q3

REPORT INFORMATION
  Report Type: Report from Study
  Country: US (occurrence: US)
  Receive Date: 20250821
  Receipt Date: 20250821
  Transmission Date: 20251021
  Serious: No
  Sender: SUNOVION
  Company Number: US-SUMITOMO PHARMA SWITZERLAND GMBH-2025SPA010513

PATIENT
  Age: 75 Year
  Sex: Male

DRUGS (13)
  1. ORGOVYX [Suspect]
     Active Substance: RELUGOLIX
     Indication: Prostate cancer
     Route: 048
  2. ORGOVYX [Suspect]
     Active Substance: RELUGOLIX
     Route: 048
  3. XTANDI [Suspect]
     Active Substance: ENZALUTAMIDE
     Indication: Product used for unknown indication
  4. ALBUTEROL [Concomitant]
     Active Substance: ALBUTEROL
  5. FAMOTIDINE [Concomitant]
     Active Substance: FAMOTIDINE
  6. FLUTICASONE PROPIONATE AND SALMETEROL [Concomitant]
     Active Substance: FLUTICASONE PROPIONATE\SALMETEROL XINAFOATE
  7. LOSARTAN [Concomitant]
     Active Substance: LOSARTAN
  8. MINOCYCLINE [Concomitant]
     Active Substance: MINOCYCLINE HYDROCHLORIDE
  9. MONTELUKAST [Concomitant]
     Active Substance: MONTELUKAST
  10. OZEMPIC [Concomitant]
     Active Substance: SEMAGLUTIDE
  11. PROAIR HFA [Concomitant]
     Active Substance: ALBUTEROL SULFATE
  12. SINGULAIR [Concomitant]
     Active Substance: MONTELUKAST SODIUM
  13. WIXELA INHUB [Concomitant]
     Active Substance: FLUTICASONE PROPIONATE\SALMETEROL XINAFOATE

REACTIONS (1)
  - Hot flush [Unknown]
